FAERS Safety Report 5321913-2 (Version None)
Quarter: 2007Q2

REPORT INFORMATION
  Report Type: 
  Country: None (occurrence: None)
  Receive Date: 20070508
  Receipt Date: 20070508
  Transmission Date: 20071010
  Serious: Yes (Other)
  Sender: FDA-Public Use
  Company Number: None

PATIENT
  Age: 47 Year
  Sex: Female
  Weight: 88.4514 kg

DRUGS (2)
  1. PRILOSEC OTC [Suspect]
     Indication: DYSPEPSIA
     Dosage: ONE DAY 14 DAY ORAL ONE DAY 3 DAY ORAL
     Route: 048
     Dates: start: 20070224, end: 20070309
  2. PRILOSEC OTC [Suspect]
     Indication: DYSPEPSIA
     Dosage: ONE DAY 14 DAY ORAL ONE DAY 3 DAY ORAL
     Route: 048
     Dates: start: 20070326, end: 20070328

REACTIONS (3)
  - PURPURA [None]
  - RASH PRURITIC [None]
  - SCAB [None]
